FAERS Safety Report 16995489 (Version 2)
Quarter: 2019Q4

REPORT INFORMATION
  Report Type: Report from Study
  Country: JP (occurrence: JP)
  Receive Date: 20191105
  Receipt Date: 20191211
  Transmission Date: 20200122
  Serious: Yes (Hospitalization)
  Sender: FDA-Public Use
  Company Number: PHHO2019JP006655

PATIENT
  Age: 72 Year
  Sex: Female
  Weight: 47 kg

DRUGS (25)
  1. LCZ696 [Suspect]
     Active Substance: SACUBITRIL\VALSARTAN
     Indication: CARDIAC FAILURE
     Dosage: 100 ML, BID
     Route: 048
     Dates: start: 20190509
  2. ATORVASTATIN CALCIUM. [Concomitant]
     Active Substance: ATORVASTATIN CALCIUM
     Indication: DYSLIPIDAEMIA
     Dosage: UNK
     Route: 065
     Dates: start: 20020101
  3. EZETIMIBE. [Concomitant]
     Active Substance: EZETIMIBE
     Indication: DYSLIPIDAEMIA
     Dosage: UNK
     Route: 065
     Dates: start: 20020101
  4. PREDNISOLONE VALERATE ACETATE [Concomitant]
     Active Substance: PREDNISOLONE VALERATE ACETATE
     Indication: ERYTHEMA
     Dosage: UNK
     Route: 065
     Dates: start: 20190625, end: 20190630
  5. ATROPINE SULFATE HYDRATE [Concomitant]
     Active Substance: ATROPINE SULFATE
     Dates: start: 20190624, end: 20190624
  6. WARFARIN POTASSIUM [Concomitant]
     Active Substance: WARFARIN POTASSIUM
     Indication: THROMBOSIS PROPHYLAXIS
     Dosage: UNK
     Route: 065
     Dates: start: 20181226
  7. ATROPINE SULFATE. [Concomitant]
     Active Substance: ATROPINE SULFATE
     Indication: CARDIAC ABLATION
     Dosage: UNK
     Route: 065
     Dates: start: 20190624, end: 20190624
  8. KETOPROFEN. [Concomitant]
     Active Substance: KETOPROFEN
     Indication: OSTEOARTHRITIS
     Dosage: UNK
     Route: 065
     Dates: start: 20160817
  9. KETOPROFEN. [Concomitant]
     Active Substance: KETOPROFEN
     Indication: MUSCULOSKELETAL STIFFNESS
  10. LOXOPROFEN SODIUM HYDRATE [Concomitant]
     Active Substance: LOXOPROFEN SODIUM DIHYDRATE
     Indication: HEADACHE
     Dosage: UNK
     Route: 065
     Dates: start: 20190624, end: 20190624
  11. BEPRIDIL HYDROCHLORIDE [Concomitant]
     Active Substance: BEPRIDIL HYDROCHLORIDE
     Indication: BRADYCARDIA
     Dosage: UNK
     Route: 065
     Dates: start: 20190625
  12. AZOSEMIDE [Concomitant]
     Active Substance: AZOSEMIDE
     Indication: CARDIAC FAILURE
     Dosage: UNK
     Route: 065
     Dates: start: 20160811
  13. KETOPROFEN. [Concomitant]
     Active Substance: KETOPROFEN
     Indication: FEELING ABNORMAL
     Dosage: UNK
     Route: 065
     Dates: start: 20190622, end: 20190630
  14. LOXOPROFEN SODIUM HYDRATE [Concomitant]
     Active Substance: LOXOPROFEN SODIUM DIHYDRATE
     Indication: MUSCULOSKELETAL STIFFNESS
  15. SUVOREXANT. [Concomitant]
     Active Substance: SUVOREXANT
     Indication: INSOMNIA
     Dosage: UNK
     Route: 065
     Dates: start: 20190314
  16. FENTANYL CITRATE. [Concomitant]
     Active Substance: FENTANYL CITRATE
     Indication: CARDIAC ABLATION
     Dosage: UNK
     Route: 065
     Dates: start: 20190624, end: 20190624
  17. PROPOFOL. [Concomitant]
     Active Substance: PROPOFOL
     Indication: CARDIAC ABLATION
     Dosage: UNK
     Route: 065
     Dates: start: 20190624, end: 20190624
  18. MALTOSE [Concomitant]
     Active Substance: MALTOSE
     Indication: CARDIAC ABLATION
     Dosage: UNK
     Route: 065
     Dates: start: 20190624, end: 20190624
  19. RABEPRAZOLE SODIUM. [Concomitant]
     Active Substance: RABEPRAZOLE SODIUM
     Indication: GASTRITIS PROPHYLAXIS
     Dosage: UNK
     Route: 065
     Dates: start: 20120706
  20. BROTIZOLAM [Concomitant]
     Active Substance: BROTIZOLAM
     Indication: INSOMNIA
     Dosage: UNK
     Route: 065
     Dates: start: 20190309, end: 20190710
  21. NORADRENALINE [Concomitant]
     Active Substance: NOREPINEPHRINE
     Indication: CARDIAC ABLATION
     Dosage: UNK
     Route: 065
     Dates: start: 20190624, end: 20190624
  22. HEPARIN SODIUM. [Concomitant]
     Active Substance: HEPARIN SODIUM
     Indication: CARDIAC ABLATION
     Dosage: UNK
     Route: 065
     Dates: start: 20190624, end: 20190624
  23. METFORMIN HYDROCHLORIDE. [Concomitant]
     Active Substance: METFORMIN HYDROCHLORIDE
     Indication: DIABETES MELLITUS
     Dosage: UNK
     Route: 065
     Dates: start: 20020101
  24. KETOPROFEN. [Concomitant]
     Active Substance: KETOPROFEN
     Indication: LUMBAR SPINAL STENOSIS
     Dosage: UNK
     Route: 065
     Dates: start: 20171101
  25. CEFAZOLIN SODIUM. [Concomitant]
     Active Substance: CEFAZOLIN SODIUM
     Indication: INFECTION PROPHYLAXIS
     Dosage: UNK
     Route: 065
     Dates: start: 20190624, end: 20190625

REACTIONS (1)
  - Atrial fibrillation [Recovered/Resolved]

NARRATIVE: CASE EVENT DATE: 20190621
